FAERS Safety Report 10906181 (Version 1)
Quarter: 2015Q1

REPORT INFORMATION
  Report Type: Spontaneous
  Country: US (occurrence: US)
  Receive Date: 20150311
  Receipt Date: 20150311
  Transmission Date: 20150721
  Serious: Yes (Hospitalization)
  Sender: FDA-Public Use
  Company Number: US-GLAXOSMITHKLINE-US2015GSK032018

PATIENT
  Age: 53 Year
  Sex: Male

DRUGS (3)
  1. ALBUTEROL. [Suspect]
     Active Substance: ALBUTEROL
     Indication: ASTHMA
     Dosage: UNK, PRN
     Route: 055
  2. ALBUTEROL. [Suspect]
     Active Substance: ALBUTEROL
     Dosage: MORE THAN 6 TIMES PER DAY
     Route: 055
  3. FLUTICASONE PROPIONATE+SALMETEROL XINAFOATE [Concomitant]
     Active Substance: FLUTICASONE PROPIONATE\SALMETEROL XINAFOATE
     Indication: ASTHMA
     Dosage: UNK, PRN

REACTIONS (5)
  - Chest pain [Unknown]
  - Asthma [Recovered/Resolved]
  - Left ventricular dysfunction [Unknown]
  - Troponin increased [Unknown]
  - Stress cardiomyopathy [Unknown]
